FAERS Safety Report 10176297 (Version 1)
Quarter: 2014Q2

REPORT INFORMATION
  Report Type: Spontaneous
  Country: US (occurrence: US)
  Receive Date: 20140516
  Receipt Date: 20140516
  Transmission Date: 20141212
  Serious: No
  Sender: FDA-Public Use
  Company Number: US-PFIZER INC-2014133770

PATIENT
  Sex: Male

DRUGS (2)
  1. XANAX XR [Suspect]
     Dosage: UNK
  2. KLONOPIN [Suspect]
     Dosage: UNK

REACTIONS (1)
  - Drug effect decreased [Unknown]
